FAERS Safety Report 5483543-1 (Version None)
Quarter: 2007Q4

REPORT INFORMATION
  Report Type: 
  Country: None (occurrence: None)
  Receive Date: 20071009
  Receipt Date: 20070921
  Transmission Date: 20080405
  Serious: Yes (Hospitalization)
  Sender: FDA-Public Use
  Company Number: DSA_30680_2007

PATIENT
  Sex: Female

DRUGS (6)
  1. VASOTEC [Suspect]
     Indication: HYPERTENSION
     Dosage: (DF ORAL)
     Route: 048
  2. HALCION [Concomitant]
  3. LEXAPRO [Concomitant]
  4. PREMARIN [Concomitant]
  5. VERAPAMIL HYDROCHLORIDE [Concomitant]
  6. ZYRTEC [Concomitant]

REACTIONS (13)
  - ANGIOEDEMA [None]
  - APHASIA [None]
  - BLOOD PH DECREASED [None]
  - BLOOD SODIUM DECREASED [None]
  - ENDOTRACHEAL INTUBATION COMPLICATION [None]
  - HAEMORRHAGE [None]
  - HYPERCAPNIA [None]
  - PCO2 INCREASED [None]
  - PHARYNGEAL OEDEMA [None]
  - PO2 DECREASED [None]
  - RESPIRATORY RATE INCREASED [None]
  - SOMNOLENCE [None]
  - SWOLLEN TONGUE [None]
